FAERS Safety Report 10223032 (Version 1)
Quarter: 2014Q2

REPORT INFORMATION
  Report Type: Spontaneous
  Country: US (occurrence: US)
  Receive Date: 20140607
  Receipt Date: 20140607
  Transmission Date: 20141212
  Serious: Yes (Other)
  Sender: FDA-Public Use
  Company Number: PHHY2014US069277

PATIENT
  Age: 34 Year
  Sex: Female

DRUGS (3)
  1. CARBAMAZEPINE [Suspect]
  2. SERTRALINE [Suspect]
  3. CITALOPRAM [Suspect]

REACTIONS (1)
  - Drug ineffective [Unknown]
